FAERS Safety Report 20417679 (Version 2)
Quarter: 2022Q1

REPORT INFORMATION
  Report Type: Spontaneous
  Country: CN (occurrence: CN)
  Receive Date: 20220202
  Receipt Date: 20220207
  Transmission Date: 20220423
  Serious: Yes (Hospitalization)
  Sender: FDA-Public Use
  Company Number: CN-ALLERGAN-2203912US

PATIENT
  Sex: Female

DRUGS (4)
  1. MEMANTINE [Suspect]
     Active Substance: MEMANTINE
     Indication: Vascular dementia
     Dosage: 20 MG, QD
     Route: 048
     Dates: start: 202111
  2. MEMANTINE [Suspect]
     Active Substance: MEMANTINE
     Dosage: 10 MG, QD
     Route: 048
     Dates: start: 202005
  3. Ku Bie Zhi [Concomitant]
     Indication: Product used for unknown indication
     Dosage: UNK
  4. Bao Er Lin [Concomitant]
     Indication: Product used for unknown indication
     Dosage: UNK

REACTIONS (4)
  - Cerebral infarction [Recovered/Resolved]
  - Nausea [Recovered/Resolved]
  - Product use in unapproved indication [Unknown]
  - Dizziness [Recovered/Resolved]

NARRATIVE: CASE EVENT DATE: 20211201
